FAERS Safety Report 7738040-7 (Version None)
Quarter: 2011Q3

REPORT INFORMATION
  Report Type: 
  Country: None (occurrence: None)
  Receive Date: 20110908
  Receipt Date: 20110907
  Transmission Date: 20111222
  Serious: Yes (Death)
  Sender: FDA-Public Use
  Company Number: GB-ROXANE LABORATORIES, INC.-2011-RO-01219RO

PATIENT
  Age: 55 Year
  Sex: Female

DRUGS (6)
  1. CHLORPROMAZINE [Suspect]
  2. MEPHEDRONE [Suspect]
  3. DIAZEPAM [Suspect]
  4. OLANZAPINE [Suspect]
  5. METHADONE HCL [Suspect]
  6. NORDIAZEPAM [Suspect]

REACTIONS (1)
  - TOXICITY TO VARIOUS AGENTS [None]
